FAERS Safety Report 8547553-X (Version None)
Quarter: 2012Q3

REPORT INFORMATION
  Report Type: 
  Country: None (occurrence: None)
  Receive Date: 20120727
  Receipt Date: 20120402
  Transmission Date: 20120928
  Serious: No
  Sender: FDA-Public Use
  Company Number: US-ASTRAZENECA-2012SE21804

PATIENT
  Age: 48 Year
  Sex: Female

DRUGS (4)
  1. GEODON [Concomitant]
     Indication: TOURETTE'S DISORDER
  2. SEROQUEL [Suspect]
     Route: 048
  3. ABILIFY [Suspect]
     Route: 065
  4. ZYPREXA [Suspect]
     Route: 065

REACTIONS (2)
  - ADVERSE DRUG REACTION [None]
  - DRUG INTOLERANCE [None]
